FAERS Safety Report 5917014-2 (Version None)
Quarter: 2008Q4

REPORT INFORMATION
  Report Type: 
  Country: None (occurrence: None)
  Receive Date: 20081009
  Receipt Date: 20081003
  Transmission Date: 20090506
  Serious: Yes (Hospitalization)
  Sender: FDA-Public Use
  Company Number: 1000001214

PATIENT
  Age: 43 Year
  Sex: Male

DRUGS (10)
  1. LEXAPRO [Suspect]
     Indication: DEPRESSION
     Dosage: 10 MG (10  MG, 1 IN 1 D), ORAL
     Route: 048
     Dates: end: 20080801
  2. BUPROPION HCL [Suspect]
     Indication: DEPRESSION
     Dates: start: 20080801
  3. LEVOTHYROXINE SODIUM [Concomitant]
  4. METFORMIN HYDROCHLORIDE [Concomitant]
  5. ADVAIR DISKUS 100/50 [Concomitant]
  6. SINGULAIR [Concomitant]
  7. LISINOPRIL [Concomitant]
  8. TRICOR [Concomitant]
  9. LIPITOR [Concomitant]
  10. ASPIRIN [Concomitant]

REACTIONS (1)
  - RASH MACULAR [None]
